FAERS Safety Report 7332342-4 (Version None)
Quarter: 2011Q1

REPORT INFORMATION
  Report Type: 
  Country: None (occurrence: None)
  Receive Date: 20110304
  Receipt Date: 20110228
  Transmission Date: 20110831
  Serious: Yes (Hospitalization)
  Sender: FDA-Public Use
  Company Number: A0897716A

PATIENT
  Age: 56 Year
  Sex: Male
  Weight: 130.5 kg

DRUGS (1)
  1. AVANDIA [Suspect]
     Dosage: 8MG PER DAY
     Route: 048
     Dates: start: 20040630, end: 20070103

REACTIONS (4)
  - CARDIAC FAILURE CONGESTIVE [None]
  - CORONARY ARTERY DISEASE [None]
  - ACUTE CORONARY SYNDROME [None]
  - MYOCARDIAL INFARCTION [None]
